FAERS Safety Report 21988336 (Version 1)
Quarter: 2023Q1

REPORT INFORMATION
  Report Type: Report from Study
  Country: FR (occurrence: FR)
  Receive Date: 20230214
  Receipt Date: 20230214
  Transmission Date: 20230418
  Serious: Yes (Hospitalization)
  Sender: FDA-Public Use
  Company Number: FR-Global Blood Therapeutics Inc-FR-GBT-22-00442

PATIENT
  Age: 43 Year
  Sex: Male
  Weight: 77 kg

DRUGS (9)
  1. VOXELOTOR [Suspect]
     Active Substance: VOXELOTOR
     Indication: Haemolytic anaemia
     Dates: start: 20211202, end: 20220111
  2. OXBRYTA [Suspect]
     Active Substance: VOXELOTOR
     Indication: Haemolytic anaemia
     Dates: start: 20211202, end: 20220111
  3. SIKLOS [Concomitant]
     Active Substance: HYDROXYUREA
     Indication: Thalassaemia beta
     Dates: start: 201304, end: 20220111
  4. SIKLOS [Concomitant]
     Active Substance: HYDROXYUREA
     Indication: Thalassaemia beta
     Dates: start: 20220215
  5. HUMAN RED BLOOD CELL [Concomitant]
     Active Substance: HUMAN RED BLOOD CELL
     Indication: Product used for unknown indication
     Dosage: 3 UNITS OF RED CELL
     Dates: start: 20220107
  6. HUMAN RED BLOOD CELL [Concomitant]
     Active Substance: HUMAN RED BLOOD CELL
     Indication: Product used for unknown indication
     Dosage: 1 UNIT OF RED CELL
     Dates: start: 20220117
  7. BETA-BLOCKERS [Concomitant]
     Indication: Product used for unknown indication
     Dosage: NOT PROVIDED
     Dates: start: 202112
  8. NEBIVOLOL [Concomitant]
     Active Substance: NEBIVOLOL
     Indication: Product used for unknown indication
  9. FLECAINIDE [Concomitant]
     Active Substance: FLECAINIDE
     Indication: Product used for unknown indication
     Dosage: NOT PROVIDED

REACTIONS (4)
  - Aplastic anaemia [Recovered/Resolved]
  - Fatigue [Not Recovered/Not Resolved]
  - Pyrexia [Recovered/Resolved]
  - Headache [Recovered/Resolved]

NARRATIVE: CASE EVENT DATE: 20220104
